FAERS Safety Report 6746494-8 (Version None)
Quarter: 2010Q2

REPORT INFORMATION
  Report Type: 
  Country: None (occurrence: None)
  Receive Date: 20100528
  Receipt Date: 20090813
  Transmission Date: 20101027
  Serious: No
  Sender: FDA-Public Use
  Company Number: US-ASTRAZENECA-2009SE13440

PATIENT
  Sex: Female

DRUGS (2)
  1. PRILOSEC OTC [Suspect]
     Dosage: NONE
     Route: 048
  2. SYLETONIDE [Concomitant]
     Dosage: UNKNOWN

REACTIONS (2)
  - INJURY [None]
  - SKIN LACERATION [None]
